FAERS Safety Report 5716617-8 (Version None)
Quarter: 2008Q2

REPORT INFORMATION
  Report Type: 
  Country: None (occurrence: None)
  Receive Date: 20080424
  Receipt Date: 20080410
  Transmission Date: 20081010
  Serious: Yes (Other)
  Sender: FDA-Public Use
  Company Number: US-AMGEN-US272426

PATIENT
  Sex: Female

DRUGS (6)
  1. ARANESP [Suspect]
     Indication: RENAL FAILURE CHRONIC
     Route: 065
     Dates: start: 20051001
  2. LISINOPRIL [Concomitant]
  3. PREDNISONE [Concomitant]
  4. IRON [Concomitant]
  5. VITAMIN TAB [Concomitant]
  6. UNSPECIFIED ANTIHYPERTENSIVE AGENT [Concomitant]

REACTIONS (3)
  - ANAEMIA [None]
  - INJECTION SITE IRRITATION [None]
  - INJECTION SITE PAIN [None]
